FAERS Safety Report 8774843 (Version 2)
Quarter: 2012Q4

REPORT INFORMATION
  Report Type: 
  Country: GB (occurrence: GB)
  Receive Date: 20120910
  Receipt Date: 20120926
  Transmission Date: 20130627
  Serious: Yes (Hospitalization)
  Sender: FDA-Public Use
  Company Number: GB-ASTRAZENECA-2012SE65832

PATIENT
  Age: 44 Year
  Weight: 85 kg

DRUGS (2)
  1. QUETIAPINE [Suspect]
     Route: 048
  2. QUETIAPINE [Suspect]
     Route: 048

REACTIONS (2)
  - Schizophrenia [Unknown]
  - Product substitution issue [Unknown]
